FAERS Safety Report 6932242-5 (Version None)
Quarter: 2010Q3

REPORT INFORMATION
  Report Type: 
  Country: None (occurrence: None)
  Receive Date: 20100819
  Receipt Date: 20100812
  Transmission Date: 20110219
  Serious: Yes (Death, Other)
  Sender: FDA-Public Use
  Company Number: DE-ROCHE-691675

PATIENT
  Sex: Male

DRUGS (3)
  1. XELODA [Suspect]
     Dosage: 3 WEEKS CYCLE
     Route: 048
     Dates: start: 20091013, end: 20100301
  2. CETUXIMAB [Suspect]
     Route: 065
     Dates: start: 20100301
  3. ZOMETA [Concomitant]

REACTIONS (2)
  - MALIGNANT NEOPLASM PROGRESSION [None]
  - RECTAL HAEMORRHAGE [None]
